FAERS Safety Report 9017177 (Version 2)
Quarter: 2013Q1

REPORT INFORMATION
  Report Type: Spontaneous
  Country: US (occurrence: US)
  Receive Date: 20130117
  Receipt Date: 20130205
  Transmission Date: 20140127
  Serious: Yes (Life-Threatening, Hospitalization)
  Sender: FDA-Public Use
  Company Number: US-BAYER-2013-003425

PATIENT
  Age: 16 Year
  Sex: Female
  Weight: 70.88 kg

DRUGS (11)
  1. YAZ [Suspect]
     Dosage: UNK
     Dates: start: 200911, end: 20110414
  2. YASMIN [Suspect]
     Dosage: UNK
     Dates: start: 200911, end: 20110414
  3. LAMICTAL [Concomitant]
     Dosage: 100 MG,DAILY
     Dates: start: 20110114
  4. LAMICTAL [Concomitant]
     Dosage: 100 MG, DAILY
     Dates: start: 20110414
  5. ZOLOFT [Concomitant]
     Dosage: 100 MG, DAILY
     Dates: start: 20110414
  6. ZOLOFT [Concomitant]
     Dosage: 100 MG, DAILY
     Dates: start: 20110114
  7. PHENOXYMETHYLPENICILLIN POTASSIUM [Concomitant]
     Dosage: 500 MG, UNK
     Dates: start: 20110118
  8. PERCOCET [Concomitant]
  9. MIRALAX [Concomitant]
  10. PLAVIX [Concomitant]
  11. MULTIVITAMIN [Concomitant]

REACTIONS (12)
  - Subclavian vein thrombosis [None]
  - Pulmonary embolism [Recovered/Resolved]
  - Thrombophlebitis superficial [None]
  - Axillary vein thrombosis [None]
  - Dyspnoea [None]
  - Pain [None]
  - Skin discolouration [None]
  - Thrombosis [None]
  - Rib excision [None]
  - Circulatory collapse [None]
  - Injury [None]
  - Emotional distress [None]
